FAERS Safety Report 8570748-6 (Version None)
Quarter: 2012Q3

REPORT INFORMATION
  Report Type: 
  Country: None (occurrence: None)
  Receive Date: 20120805
  Receipt Date: 20120723
  Transmission Date: 20120928
  Serious: No
  Sender: FDA-Public Use
  Company Number: US-009507513-1207USA009745

PATIENT

DRUGS (2)
  1. NORVASC [Suspect]
     Dosage: 5 MG, UNK
  2. ZOCOR [Suspect]
     Dosage: 40 MG, UNK
     Route: 048

REACTIONS (2)
  - ALOPECIA [None]
  - NAUSEA [None]
